FAERS Safety Report 8518954-0 (Version None)
Quarter: 2012Q3

REPORT INFORMATION
  Report Type: 
  Country: None (occurrence: None)
  Receive Date: 20120718
  Receipt Date: 20120713
  Transmission Date: 20120928
  Serious: Yes (Other)
  Sender: FDA-Public Use
  Company Number: JP-GLAXOSMITHKLINE-B0811360A

PATIENT
  Sex: Male

DRUGS (6)
  1. DILTIAZEM HCL [Concomitant]
     Dosage: 100MG PER DAY
     Route: 048
  2. DUTASTERIDE [Suspect]
     Indication: PRODUCT USED FOR UNKNOWN INDICATION
     Dosage: .5MG PER DAY
     Route: 048
     Dates: start: 20111025, end: 20120610
  3. ARYTHMET [Concomitant]
     Dosage: 100MG PER DAY
     Route: 048
  4. LOSARTAN POTASSIUM [Concomitant]
     Dosage: 25MG PER DAY
     Route: 048
  5. DUTASTERIDE [Suspect]
     Dosage: .5MG PER DAY
     Route: 048
     Dates: start: 20120612
  6. URIEF [Concomitant]
     Dosage: 8MG PER DAY
     Route: 048
     Dates: start: 20111025, end: 20120610

REACTIONS (1)
  - HAEMATOCHEZIA [None]
